FAERS Safety Report 4575303-0 (Version None)
Quarter: 2005Q1

REPORT INFORMATION
  Report Type: 
  Country: None (occurrence: None)
  Receive Date: 20050209
  Receipt Date: 20050128
  Transmission Date: 20050727
  Serious: Yes (Disabling)
  Sender: FDA-Public Use
  Company Number: BE-JNJFOC-20050200008

PATIENT
  Age: 31 Year
  Sex: Male

DRUGS (4)
  1. REMICADE [Suspect]
     Indication: ANKYLOSING SPONDYLITIS
     Dosage: 3 INFUSIONS.
     Route: 042
  2. AMLODIPINE BESYLATE [Concomitant]
     Indication: HYPERTENSION
  3. ALLOPURINOL [Concomitant]
  4. SULFASALAZINE [Concomitant]
     Dosage: +/- 4 YEARS.

REACTIONS (1)
  - PSORIASIS [None]
